FAERS Safety Report 4900515-3 (Version None)
Quarter: 2006Q1

REPORT INFORMATION
  Report Type: 
  Country: None (occurrence: None)
  Receive Date: 20060203
  Receipt Date: 20050203
  Transmission Date: 20060701
  Serious: Yes (Hospitalization)
  Sender: FDA-Public Use
  Company Number: US-MERCK-0502USA00528

PATIENT
  Age: 67 Year
  Sex: Male

DRUGS (2)
  1. VIOXX [Suspect]
     Route: 048
     Dates: start: 20010801, end: 20030601
  2. VIOXX [Suspect]
     Route: 048
     Dates: start: 20020301, end: 20041001

REACTIONS (5)
  - ACUTE SINUSITIS [None]
  - CEREBRAL ISCHAEMIA [None]
  - CHOLELITHIASIS [None]
  - CORONARY ARTERY DISEASE [None]
  - HYPERTENSION [None]
